FAERS Safety Report 6992031 (Version 1)
Quarter: 2020Q3

REPORT INFORMATION
  Report Type: Spontaneous
  Country: DE (occurrence: DE)
  Receive Date: 20090512
  Receipt Date: 20090512
  Transmission Date: 20201104
  Serious: Yes (Other)
  Sender: FDA-Public Use
  Company Number: DE-ROCHE-616425

PATIENT
  Sex: Female
  Weight: 70 kg

DRUGS (2)
  1. BONIVA [Suspect]
     Active Substance: IBANDRONATE SODIUM
     Indication: OSTEOPOROSIS
     Route: 042
  2. IBANDRONIC ACID. [Suspect]
     Active Substance: IBANDRONIC ACID
     Indication: OSTEOPOROSIS
     Dosage: ROUTE REPORTED AS INJECTION
     Route: 050

REACTIONS (2)
  - Bronchospasm [Unknown]
  - Chest discomfort [Recovered/Resolved]
